FAERS Safety Report 23112263 (Version 3)
Quarter: 2023Q4

REPORT INFORMATION
  Report Type: Report from Study
  Country: US (occurrence: US)
  Receive Date: 20231026
  Receipt Date: 20231211
  Transmission Date: 20240109
  Serious: Yes (Hospitalization, Other)
  Sender: FDA-Public Use
  Company Number: US-ABBVIE-5464079

PATIENT
  Sex: Male

DRUGS (1)
  1. SKYRIZI [Suspect]
     Active Substance: RISANKIZUMAB-RZAA
     Indication: Psoriasis
     Route: 058
     Dates: start: 20220225, end: 20231030

REACTIONS (7)
  - Sepsis [Not Recovered/Not Resolved]
  - Cardiac failure congestive [Not Recovered/Not Resolved]
  - Fluid retention [Unknown]
  - Cirrhosis alcoholic [Not Recovered/Not Resolved]
  - Diabetes mellitus [Unknown]
  - Atrial fibrillation [Unknown]
  - Pharyngitis [Unknown]

NARRATIVE: CASE EVENT DATE: 20230101
